FAERS Safety Report 12468163 (Version 2)
Quarter: 2016Q2

REPORT INFORMATION
  Report Type: Spontaneous
  Country: TR (occurrence: TR)
  Receive Date: 20160615
  Receipt Date: 20160628
  Transmission Date: 20160815
  Serious: Yes (Hospitalization)
  Sender: FDA-Public Use
  Company Number: TR-JNJFOC-20160610964

PATIENT
  Age: 51 Year
  Sex: Male

DRUGS (4)
  1. ZOFER [Concomitant]
     Active Substance: ONDANSETRON HYDROCHLORIDE
     Indication: PAIN
     Route: 065
  2. TRAMADOL HYDROCHLORIDE. [Suspect]
     Active Substance: TRAMADOL HYDROCHLORIDE
     Indication: PAIN
     Route: 048
  3. PAROL [Concomitant]
     Active Substance: ACETAMINOPHEN
     Indication: PAIN
     Route: 065
  4. FELDENE [Concomitant]
     Active Substance: PIROXICAM
     Indication: PAIN
     Route: 065

REACTIONS (4)
  - Tremor [Recovered/Resolved]
  - Loss of consciousness [Recovered/Resolved]
  - Hyperhidrosis [Recovered/Resolved]
  - Generalised tonic-clonic seizure [Recovered/Resolved]
